FAERS Safety Report 19435978 (Version 1)
Quarter: 2021Q2

REPORT INFORMATION
  Report Type: Spontaneous
  Country: FI (occurrence: FI)
  Receive Date: 20210618
  Receipt Date: 20210618
  Transmission Date: 20210717
  Serious: Yes (Hospitalization, Other)
  Sender: FDA-Public Use
  Company Number: FI-ACCORD-228532

PATIENT
  Age: 66 Year
  Sex: Female

DRUGS (1)
  1. TOPOTECAN [Suspect]
     Active Substance: TOPOTECAN HYDROCHLORIDE
     Indication: SMALL CELL LUNG CANCER
     Dosage: LAST DOSE ADMINISTERED SEP?2018
     Dates: start: 201806

REACTIONS (5)
  - C-reactive protein increased [Recovering/Resolving]
  - Normocytic anaemia [Recovering/Resolving]
  - Neutropenic colitis [Recovering/Resolving]
  - Thrombocytopenia [Recovering/Resolving]
  - Leukopenia [Recovering/Resolving]

NARRATIVE: CASE EVENT DATE: 2018
